FAERS Safety Report 5377013-9 (Version None)
Quarter: 2007Q2

REPORT INFORMATION
  Report Type: 
  Country: None (occurrence: None)
  Receive Date: 20070628
  Receipt Date: 20070628
  Transmission Date: 20071010
  Serious: Yes (Life-Threatening, Hospitalization, Disabling, Other)
  Sender: FDA-Public Use
  Company Number: None

PATIENT
  Sex: Male
  Weight: 102.9665 kg

DRUGS (2)
  1. SEROQUEL [Suspect]
     Indication: BIPOLAR DISORDER
     Dosage: 300 MG  4 TIMES DAILY  PO
     Route: 048
     Dates: start: 20030929, end: 20061125
  2. SEROQUEL [Suspect]
     Indication: SLEEP DISORDER
     Dosage: 300 MG  4 TIMES DAILY  PO
     Route: 048
     Dates: start: 20030929, end: 20061125

REACTIONS (20)
  - ARTERIAL THROMBOSIS LIMB [None]
  - BLOOD GLUCOSE INCREASED [None]
  - BLOOD PRESSURE INCREASED [None]
  - CATATONIA [None]
  - COMA [None]
  - CONVULSION [None]
  - DEHYDRATION [None]
  - DIABETES MELLITUS [None]
  - DIABETES MELLITUS INSULIN-DEPENDENT [None]
  - DIABETIC KETOACIDOSIS [None]
  - EXTRAPYRAMIDAL DISORDER [None]
  - GANGRENE [None]
  - HYPERNATRAEMIA [None]
  - HYPERTENSION [None]
  - LEG AMPUTATION [None]
  - MUSCLE RIGIDITY [None]
  - NECROSIS [None]
  - NEUROLEPTIC MALIGNANT SYNDROME [None]
  - RENAL FAILURE ACUTE [None]
  - TARDIVE DYSKINESIA [None]
